FAERS Safety Report 7071542-8 (Version None)
Quarter: 2010Q4

REPORT INFORMATION
  Report Type: 
  Country: None (occurrence: None)
  Receive Date: 20101029
  Receipt Date: 20090921
  Transmission Date: 20110411
  Serious: No
  Sender: FDA-Public Use
  Company Number: A0808288A

PATIENT
  Age: 73 Year
  Sex: Male

DRUGS (7)
  1. ADVAIR DISKUS 100/50 [Suspect]
     Indication: BRONCHIAL WALL THICKENING
     Dosage: 1PUFF TWICE PER DAY
     Route: 055
     Dates: start: 20090831
  2. SYNTHROID [Concomitant]
  3. VITAMIN B-12 [Concomitant]
  4. PROTONIX [Concomitant]
  5. SIMVASTATIN [Concomitant]
  6. JANUVIA [Concomitant]
  7. LISINOPRIL [Concomitant]

REACTIONS (2)
  - DRUG INEFFECTIVE [None]
  - DYSPHONIA [None]
